FAERS Safety Report 5189342-2 (Version None)
Quarter: 2006Q4

REPORT INFORMATION
  Report Type: 
  Country: None (occurrence: None)
  Receive Date: 20061215
  Receipt Date: 20061206
  Transmission Date: 20070319
  Serious: Yes (Other)
  Sender: FDA-Public Use
  Company Number: 2006098408

PATIENT
  Age: 67 Year
  Sex: Female
  Weight: 50.8029 kg

DRUGS (3)
  1. LYRICA [Suspect]
     Indication: HERPES ZOSTER
     Dosage: 150 MG (50 MG, 3 IN 1 D)
     Dates: start: 20060101, end: 20060101
  2. LYRICA [Suspect]
     Indication: POST HERPETIC NEURALGIA
     Dosage: 150 MG (50 MG, 3 IN 1 D)
     Dates: start: 20060101, end: 20060101
  3. ALL OTHER THERAPEUTIC PRODUCTS (ALL OTHER THERAPEUTIC PRODUCTS) [Concomitant]

REACTIONS (5)
  - CRYING [None]
  - DEPRESSION [None]
  - DRUG INEFFECTIVE [None]
  - MALAISE [None]
  - NEPHROLITHIASIS [None]
